FAERS Safety Report 4719040-8 (Version None)
Quarter: 2005Q3

REPORT INFORMATION
  Report Type: 
  Country: None (occurrence: None)
  Receive Date: 20050719
  Receipt Date: 20050706
  Transmission Date: 20060218
  Serious: Yes (Other)
  Sender: FDA-Public Use
  Company Number: 2005-02335

PATIENT
  Age: 29 Year
  Sex: Female

DRUGS (1)
  1. TRIAMCINOLONE DIACETATE [Suspect]
     Indication: PERIARTHRITIS
     Dosage: 40 MG, INJECTIONS, INTRA-ARTICULAR
     Route: 014

REACTIONS (4)
  - ARTHROPATHY [None]
  - INTENTIONAL MISUSE [None]
  - JOINT DESTRUCTION [None]
  - OVERDOSE [None]
